FAERS Safety Report 11740202 (Version 2)
Quarter: 2015Q4

REPORT INFORMATION
  Report Type: Spontaneous
  Country: US (occurrence: US)
  Receive Date: 20151110
  Receipt Date: 20151120
  Transmission Date: 20160304
  Serious: No
  Sender: FDA-Public Use
  Company Number: US-ELI_LILLY_AND_COMPANY-US201206008273

PATIENT
  Age: 84 Year
  Sex: Female

DRUGS (4)
  1. FORTEO [Suspect]
     Active Substance: TERIPARATIDE
     Dosage: 20 UG, QD
     Route: 065
  2. FORTEO [Suspect]
     Active Substance: TERIPARATIDE
     Indication: OSTEOPOROSIS
     Dosage: 20 UG, QD
     Route: 065
     Dates: start: 20120504
  3. PHENOBARBITAL. [Concomitant]
     Active Substance: PHENOBARBITAL
     Dosage: UNK, UNKNOWN
  4. ANAESTHETICS [Concomitant]
     Active Substance: UNSPECIFIED INGREDIENT

REACTIONS (23)
  - Urinary tract disorder [Unknown]
  - Mouth swelling [Recovering/Resolving]
  - Joint swelling [Recovering/Resolving]
  - Fear [Unknown]
  - Osteoporosis [Unknown]
  - Dyspnoea [Recovering/Resolving]
  - Lip swelling [Recovering/Resolving]
  - Somnolence [Not Recovered/Not Resolved]
  - Muscle spasms [Recovered/Resolved]
  - Polypectomy [Not Recovered/Not Resolved]
  - Gait disturbance [Not Recovered/Not Resolved]
  - Swelling face [Recovering/Resolving]
  - Peripheral swelling [Recovering/Resolving]
  - Arthralgia [Not Recovered/Not Resolved]
  - Abdominal distension [Recovered/Resolved]
  - Dizziness [Not Recovered/Not Resolved]
  - Intentional product misuse [Unknown]
  - Breast operation [Not Recovered/Not Resolved]
  - Mobility decreased [Not Recovered/Not Resolved]
  - Pollakiuria [Recovering/Resolving]
  - Feeling abnormal [Not Recovered/Not Resolved]
  - Rash [Recovering/Resolving]
  - Asthenia [Not Recovered/Not Resolved]

NARRATIVE: CASE EVENT DATE: 201206
